FAERS Safety Report 7908825-2 (Version None)
Quarter: 2011Q4

REPORT INFORMATION
  Report Type: 
  Country: None (occurrence: None)
  Receive Date: 20111111
  Receipt Date: 20111109
  Transmission Date: 20120403
  Serious: Yes (Hospitalization, Other)
  Sender: FDA-Public Use
  Company Number: NO-PFIZER INC-2011274096

PATIENT
  Age: 45 Year
  Sex: Female

DRUGS (9)
  1. PINEX FORTE [Concomitant]
     Dosage: AS NEEDED
  2. NEURONTIN [Suspect]
     Indication: NEURALGIA
     Dosage: 300 MG, 3X/DAY
     Dates: start: 20111017, end: 20111020
  3. IMOVANE [Concomitant]
     Dosage: 1 DF, 1X/DAY
  4. IBUPROFEN [Concomitant]
     Dosage: 400 MG THREE TIMES DAILY WHEN NEEDED
  5. SINGULAIR [Concomitant]
     Dosage: 10 MG, 1X/DAY
  6. NASONEX [Concomitant]
     Indication: NEURALGIA
  7. CETIRIZINE HCL [Concomitant]
     Dosage: 10 MG, 1X/DAY
  8. SYMBICORT [Concomitant]
     Indication: OBSTRUCTIVE AIRWAYS DISORDER
     Dosage: 160/4.5 MICROG 1-4 TIMES
  9. VENTOLIN [Concomitant]
     Dosage: 0.1 MG 2-4 DOSES UP TO 4 TIMES DAILY

REACTIONS (5)
  - VOMITING [None]
  - HEPATIC ENZYME ABNORMAL [None]
  - NAUSEA [None]
  - HAEMATEMESIS [None]
  - DIZZINESS [None]
